FAERS Safety Report 14419126 (Version 3)
Quarter: 2018Q2

REPORT INFORMATION
  Report Type: Spontaneous
  Country: US (occurrence: US)
  Receive Date: 20180122
  Receipt Date: 20180524
  Transmission Date: 20180711
  Serious: Yes (Hospitalization)
  Sender: FDA-Public Use
  Company Number: US-JNJFOC-20180109848

PATIENT
  Age: 67 Year
  Sex: Female
  Weight: 61.23 kg

DRUGS (9)
  1. EPACADOSTAT [Suspect]
     Active Substance: EPACADOSTAT
     Indication: GLIOBLASTOMA
     Route: 048
     Dates: start: 20160324, end: 20160330
  2. BENADRYL [Suspect]
     Active Substance: DIPHENHYDRAMINE HYDROCHLORIDE
     Indication: PRURITUS
     Route: 065
     Dates: start: 20160313
  3. EPACADOSTAT [Suspect]
     Active Substance: EPACADOSTAT
     Indication: GLIOBLASTOMA
     Route: 048
     Dates: start: 20160303, end: 20160314
  4. DECADRON [Concomitant]
     Active Substance: DEXAMETHASONE
     Indication: PRODUCT USED FOR UNKNOWN INDICATION
     Route: 042
     Dates: start: 20150511
  5. EPACADOSTAT [Suspect]
     Active Substance: EPACADOSTAT
     Indication: GLIOBLASTOMA
     Route: 048
     Dates: start: 20160407
  6. NIVOLUMAB [Suspect]
     Active Substance: NIVOLUMAB
     Indication: GLIOBLASTOMA
     Dosage: 3 MG/KG (192 MG), ONCE A WEEK (QOW)
     Route: 042
     Dates: start: 20160303, end: 20160314
  7. NIVOLUMAB [Suspect]
     Active Substance: NIVOLUMAB
     Indication: GLIOBLASTOMA
     Dosage: 3 MG/KG (192 MG), ONCE A WEEK (QOW)
     Route: 042
     Dates: start: 20160414
  8. KEPPRA [Concomitant]
     Active Substance: LEVETIRACETAM
     Indication: PRODUCT USED FOR UNKNOWN INDICATION
     Route: 042
     Dates: start: 20150511
  9. KEPPRA [Concomitant]
     Active Substance: LEVETIRACETAM
     Indication: PRODUCT USED FOR UNKNOWN INDICATION
     Route: 042
     Dates: start: 20160330

REACTIONS (2)
  - Rash maculo-papular [Recovered/Resolved]
  - Confusional state [Recovered/Resolved]

NARRATIVE: CASE EVENT DATE: 20160314
